FAERS Safety Report 8832892 (Version 2)
Quarter: 2012Q4

REPORT INFORMATION
  Report Type: 
  Country: US (occurrence: US)
  Receive Date: 20121010
  Receipt Date: 20121112
  Transmission Date: 20130627
  Serious: Yes (Other)
  Sender: FDA-Public Use
  Company Number: US-ELI_LILLY_AND_COMPANY-US201209005821

PATIENT
  Sex: Female

DRUGS (4)
  1. FORTEO [Suspect]
     Indication: OSTEOPOROSIS
     Dosage: 20 ug, qd
     Route: 065
     Dates: start: 20120706
  2. FORTEO [Suspect]
     Dosage: 20 ug, qd
     Route: 065
     Dates: start: 20120706
  3. SYNTHROID [Concomitant]
     Dosage: UNK, qd
  4. PREDNISONE [Concomitant]
     Dosage: UNK, qd

REACTIONS (11)
  - Chest pain [Unknown]
  - Cardiac stress test abnormal [Unknown]
  - Catheterisation cardiac abnormal [Unknown]
  - Pain in extremity [Unknown]
  - Arthralgia [Unknown]
  - Arthralgia [Unknown]
  - Arthritis [Unknown]
  - Mobility decreased [Unknown]
  - Dyspepsia [Unknown]
  - Paraesthesia [Unknown]
  - Back pain [Unknown]
